FAERS Safety Report 5858839-1 (Version None)
Quarter: 2008Q3

REPORT INFORMATION
  Report Type: 
  Country: None (occurrence: None)
  Receive Date: 20080818
  Receipt Date: 20080515
  Transmission Date: 20090109
  Serious: No
  Sender: FDA-Public Use
  Company Number: WAES 0801USA02694

PATIENT
  Age: 61 Year
  Sex: Male
  Weight: 89.3586 kg

DRUGS (3)
  1. JANUVIA [Suspect]
     Indication: TYPE 2 DIABETES MELLITUS
     Dosage: 100 MG/DAILY/PO : PO
     Route: 048
     Dates: start: 20061207, end: 20070201
  2. [THERAPY UNSPECIFIED] [Concomitant]
  3. METFORMIN HCL [Concomitant]

REACTIONS (3)
  - GALLBLADDER DISORDER [None]
  - HILAR LYMPHADENOPATHY [None]
  - NEPHRITIS INTERSTITIAL [None]
